FAERS Safety Report 11230063 (Version 1)
Quarter: 2015Q3

REPORT INFORMATION
  Report Type: Spontaneous
  Country: IT (occurrence: IT)
  Receive Date: 20150701
  Receipt Date: 20150701
  Transmission Date: 20151125
  Serious: Yes (Other)
  Sender: FDA-Public Use
  Company Number: IT-009507513-1506ITA014254

PATIENT
  Age: 51 Year
  Sex: Female

DRUGS (4)
  1. REBETOL [Suspect]
     Active Substance: RIBAVIRIN
     Indication: CHRONIC HEPATITIS C
     Dosage: 1000 MG DAILY
     Route: 048
     Dates: start: 20141009, end: 2014
  2. VICTRELIS [Suspect]
     Active Substance: BOCEPREVIR
     Indication: CHRONIC HEPATITIS C
     Dosage: 2400 MG, DAILY
     Route: 048
     Dates: start: 20141009, end: 20150507
  3. REBETOL [Suspect]
     Active Substance: RIBAVIRIN
     Dosage: 400 MG, DAILY
     Dates: start: 201411, end: 20150110
  4. PEGASYS [Suspect]
     Active Substance: PEGINTERFERON ALFA-2A
     Indication: CHRONIC HEPATITIS C
     Dosage: 180 MG, QW
     Route: 048
     Dates: start: 20141009

REACTIONS (4)
  - Neutropenia [Recovering/Resolving]
  - Dermatitis [Recovering/Resolving]
  - Anaemia [Recovering/Resolving]
  - Infection reactivation [Recovering/Resolving]

NARRATIVE: CASE EVENT DATE: 20141114
